FAERS Safety Report 4876599-8 (Version None)
Quarter: 2006Q1

REPORT INFORMATION
  Report Type: 
  Country: None (occurrence: None)
  Receive Date: 20060110
  Receipt Date: 20060110
  Transmission Date: 20060701
  Serious: Yes (Other)
  Sender: FDA-Public Use
  Company Number: None

PATIENT
  Sex: Female
  Weight: 67.1324 kg

DRUGS (1)
  1. MIFEPRISTONE 5 MG. [Suspect]
     Indication: UTERINE LEIOMYOMA
     Dosage: 1 CAP. QD PO
     Route: 048
     Dates: start: 20040801, end: 20050701

REACTIONS (1)
  - HODGKIN'S DISEASE STAGE I [None]
